FAERS Safety Report 10019572 (Version 1)
Quarter: 2014Q1

REPORT INFORMATION
  Report Type: Spontaneous
  Country: US (occurrence: US)
  Receive Date: 20140318
  Receipt Date: 20140318
  Transmission Date: 20141002
  Serious: Yes (Death)
  Sender: FDA-Public Use
  Company Number: US-ELI_LILLY_AND_COMPANY-US201403003759

PATIENT
  Sex: Male

DRUGS (1)
  1. GLUCAGON [Suspect]
     Indication: HYPOGLYCAEMIA
     Dosage: UNK, UNK
     Route: 065

REACTIONS (2)
  - Malignant pleural effusion [Fatal]
  - Non-small cell lung cancer [Fatal]
